FAERS Safety Report 7274926-8 (Version None)
Quarter: 2011Q1

REPORT INFORMATION
  Report Type: 
  Country: None (occurrence: None)
  Receive Date: 20110204
  Receipt Date: 20110118
  Transmission Date: 20110831
  Serious: No
  Sender: FDA-Public Use
  Company Number: US-B.I. PHARMACEUTICALS,INC./RIDGEFIELD-2011-BP-01919BP

PATIENT
  Sex: Female

DRUGS (5)
  1. SPIRIVA [Suspect]
     Indication: ASTHMA
  2. SPIRIVA [Suspect]
     Indication: PULMONARY HYPERTENSION
     Dosage: 18 MCG
     Route: 055
     Dates: start: 20110106
  3. ADCIRCA [Concomitant]
     Indication: PULMONARY HYPERTENSION
     Dosage: 40 MG
  4. COUMADIN [Concomitant]
     Indication: ATRIAL FIBRILLATION
  5. DILTIAZEM [Concomitant]
     Indication: HYPERTENSION
     Dosage: 180 MG

REACTIONS (2)
  - DYSPNOEA [None]
  - DRY SKIN [None]
